FAERS Safety Report 18848355 (Version 1)
Quarter: 2021Q1

REPORT INFORMATION
  Report Type: Spontaneous
  Country: IN (occurrence: IN)
  Receive Date: 20210204
  Receipt Date: 20210204
  Transmission Date: 20210419
  Serious: Yes (Hospitalization)
  Sender: FDA-Public Use
  Company Number: IN-FRESENIUS KABI-FK202101184

PATIENT
  Age: 12 Year
  Sex: Male

DRUGS (13)
  1. CYCLOPHOSPHAMIDE. [Suspect]
     Active Substance: CYCLOPHOSPHAMIDE
     Dosage: PREPHASE REGIMEN ?SINGLE DOSE
     Route: 065
  2. HYDROCORTISONE. [Suspect]
     Active Substance: HYDROCORTISONE
     Indication: BURKITT^S LEUKAEMIA
     Dosage: PART OF TRIPLE INTRATHECAL THERAPY?3 DOSES ON DAYS 2, 4 AND 6
     Route: 037
  3. PREDNISOLONE. [Suspect]
     Active Substance: PREDNISOLONE
     Indication: BURKITT^S LEUKAEMIA
     Dosage: INDUCTION CHEMOTHERAPY (COPADM?I)?60 MG/M2, DAILY FOR 5 DAYS
     Route: 048
  4. PREDNISOLONE. [Suspect]
     Active Substance: PREDNISOLONE
     Dosage: PREPHASE REGIMEN?7 DAYS OF ORAL PREDNISOLONE 60 MG/M2 DAILY
     Route: 048
  5. METHOTREXATE. [Suspect]
     Active Substance: METHOTREXATE
     Dosage: PART OF TRIPLE INTRATHECAL THERAPY (3 DOSES)?ON DAYS 2, 4 AND 6
     Route: 037
  6. VINCRISTINE [Suspect]
     Active Substance: VINCRISTINE
     Dosage: PREPHASE REGIMEN?1 MG/M2, SINGLE DOSE
     Route: 065
  7. RITUXIMAB. [Suspect]
     Active Substance: RITUXIMAB
     Indication: BURKITT^S LEUKAEMIA
     Dosage: ON ALTERNATE DAYS, 2 DOSES
     Route: 065
  8. DOXORUBICIN (MANUFACTURER UNKNOWN) [Suspect]
     Active Substance: DOXORUBICIN
     Indication: BURKITT^S LEUKAEMIA
     Dosage: INDUCTION CHEMOTHERAPY (COPADM?I)?DOSE: 60 MG/M2, DAY 2
     Route: 065
  9. VINCRISTINE [Suspect]
     Active Substance: VINCRISTINE
     Indication: BURKITT^S LEUKAEMIA
     Dosage: INDUCTION CHEMOTHERAPY (COPADM?I)?2 MG/M2 ON DAY 1, SINGLE DOSE
     Route: 065
  10. FOLINIC ACID [Concomitant]
     Active Substance: LEUCOVORIN
     Indication: TOXICITY TO VARIOUS AGENTS
     Dosage: 16 DOSES OF FOLINIC ACID [LEUCOVORIN] RESCUE
     Route: 065
  11. CYCLOPHOSPHAMIDE. [Suspect]
     Active Substance: CYCLOPHOSPHAMIDE
     Indication: BURKITT^S LEUKAEMIA
     Dosage: INDUCTION CHEMOTHERAPY (COPADM?I)?(DAYS 2?4)
     Route: 065
  12. METHOTREXATE. [Suspect]
     Active Substance: METHOTREXATE
     Indication: BURKITT^S LEUKAEMIA
     Dosage: INDUCTION CHEMOTHERAPY (COPADM?I)?HIGH DOSE, 8 G/M2 OVER 4 HOURS ON DAY 1
     Route: 065
  13. CYTARABINE. [Concomitant]
     Active Substance: CYTARABINE
     Indication: BURKITT^S LEUKAEMIA
     Dosage: PART OF TRIPLE INTRATHECAL THERAPY?3 DOSES ON DAYS 2, 4 AND 6
     Route: 037

REACTIONS (1)
  - Drug-induced liver injury [Recovered/Resolved]
